FAERS Safety Report 11303130 (Version 2)
Quarter: 2015Q3

REPORT INFORMATION
  Report Type: Spontaneous
  Country: DE (occurrence: DE)
  Receive Date: 20150723
  Receipt Date: 20150811
  Transmission Date: 20151125
  Serious: Yes (Other)
  Sender: FDA-Public Use
  Company Number: DE-AMGEN-DEUSP2015072598

PATIENT
  Age: 59 Year
  Sex: Male
  Weight: 69 kg

DRUGS (9)
  1. CALCIUMFOLINAT [Concomitant]
     Active Substance: LEUCOVORIN CALCIUM
     Indication: NEOPLASM
     Dosage: 290 MG, Q2WK (EVERY 14 DAYS)
     Route: 042
     Dates: start: 20150507, end: 20150714
  2. 5-FU                               /00098801/ [Concomitant]
     Active Substance: FLUOROURACIL
     Indication: NEOPLASM
     Dosage: 4600 MG, Q2WK (EVERY 14 DAYS)
     Route: 042
     Dates: start: 20150507, end: 20150714
  3. XGEVA [Suspect]
     Active Substance: DENOSUMAB
     Indication: METASTASES TO BONE
     Dosage: 120 MG, QMO
     Route: 058
     Dates: start: 20140227
  4. FOLFOX [Concomitant]
     Active Substance: FLUOROURACIL\LEUCOVORIN CALCIUM\OXALIPLATIN
     Dosage: UNK
  5. OXALIPLATIN. [Concomitant]
     Active Substance: OXALIPLATIN
     Indication: NEOPLASM
     Dosage: 1145 MG, (EVERY 14 DAYS)
     Route: 042
     Dates: start: 20150507, end: 20150714
  6. CALCIUM [Concomitant]
     Active Substance: CALCIUM
     Indication: SUPPORTIVE CARE
     Dosage: UNK (2X50) MG, QD
     Route: 048
  7. FOLFIRI [Concomitant]
     Active Substance: FLUOROURACIL\IRINOTECAN\LEUCOVORIN
     Dosage: UNK
  8. AVASTIN [Concomitant]
     Active Substance: BEVACIZUMAB
     Indication: NEOPLASM
     Dosage: 350 MG, Q2WK (EVERY 14 DAYS)
     Route: 042
     Dates: start: 20150507, end: 20150714
  9. DEKRISTOL [Concomitant]
     Active Substance: CHOLECALCIFEROL
     Indication: HYPOVITAMINOSIS
     Dosage: 20000 (UNK, UNK
     Route: 048

REACTIONS (3)
  - Osteonecrosis of jaw [Recovering/Resolving]
  - Tooth disorder [Unknown]
  - Pain in jaw [Unknown]

NARRATIVE: CASE EVENT DATE: 2015
